FAERS Safety Report 5813310-8 (Version None)
Quarter: 2008Q3

REPORT INFORMATION
  Report Type: 
  Country: None (occurrence: None)
  Receive Date: 20080717
  Receipt Date: 20080714
  Transmission Date: 20090109
  Serious: Yes (Life-Threatening, Other)
  Sender: FDA-Public Use
  Company Number: GB-BRISTOL-MYERS SQUIBB COMPANY-14150973

PATIENT
  Age: 40 Year
  Sex: Female

DRUGS (1)
  1. SPRYCEL [Suspect]
     Indication: MASTOCYTOSIS
     Dosage: FORMULATION: TABLET
     Dates: start: 20080410, end: 20080410

REACTIONS (5)
  - ABDOMINAL PAIN [None]
  - DIARRHOEA [None]
  - FLUSHING [None]
  - MALAISE [None]
  - VOMITING [None]
